FAERS Safety Report 18659479 (Version 1)
Quarter: 2020Q4

REPORT INFORMATION
  Report Type: Spontaneous
  Country: US (occurrence: US)
  Receive Date: 20201223
  Receipt Date: 20201223
  Transmission Date: 20210114
  Serious: No
  Sender: FDA-Public Use
  Company Number: US-GILEAD-2020-0510454

PATIENT
  Sex: Female

DRUGS (1)
  1. VEKLURY [Suspect]
     Active Substance: REMDESIVIR
     Indication: PRODUCT USED FOR UNKNOWN INDICATION
     Dosage: ^POSSIBLY POWDER ASSUMED 200 WITH 250 ML^
     Route: 042

REACTIONS (1)
  - Extravasation [Unknown]

NARRATIVE: CASE EVENT DATE: 20201219
